FAERS Safety Report 4910211-4 (Version None)
Quarter: 2006Q1

REPORT INFORMATION
  Report Type: 
  Country: None (occurrence: None)
  Receive Date: 20060209
  Receipt Date: 20051019
  Transmission Date: 20060701
  Serious: Yes (Other)
  Sender: FDA-Public Use
  Company Number: 2005145450

PATIENT
  Age: 83 Year
  Sex: Female
  Weight: 61.2356 kg

DRUGS (2)
  1. DETROL LA [Suspect]
     Indication: HYPERTONIC BLADDER
     Dosage: ORAL
     Route: 048
     Dates: start: 20020101
  2. MAXAIR [Concomitant]

REACTIONS (3)
  - ABDOMINAL PAIN UPPER [None]
  - HYSTERECTOMY [None]
  - POST PROCEDURAL COMPLICATION [None]
